FAERS Safety Report 25077443 (Version 2)
Quarter: 2025Q2

REPORT INFORMATION
  Report Type: Spontaneous
  Country: US (occurrence: US)
  Receive Date: 20250314
  Receipt Date: 20250619
  Transmission Date: 20250717
  Serious: Yes (Other)
  Sender: REGENERON
  Company Number: US-REGENERON PHARMACEUTICALS, INC.-2025-045782

PATIENT
  Sex: Female

DRUGS (29)
  1. PRALUENT [Suspect]
     Active Substance: ALIROCUMAB
     Indication: Blood cholesterol increased
     Dosage: 150 MG, Q2W (EVERY OTHER WEEK), STRENGTH: 150 MG/ML
     Route: 058
     Dates: start: 20200717
  2. PANTOPRAZOLE [Concomitant]
     Active Substance: PANTOPRAZOLE
     Indication: Product used for unknown indication
     Dosage: 40 MG, BID (BEFORE BREAKFAST AND BEFORE DINNER)
     Route: 065
  3. BONIVA [Concomitant]
     Active Substance: IBANDRONATE SODIUM
     Indication: Product used for unknown indication
     Route: 065
     Dates: start: 202408
  4. METAMUCIL [Concomitant]
     Active Substance: PLANTAGO SEED
     Indication: Product used for unknown indication
     Dosage: 5 {DF}, BID (.52G, AFTER BREAKFAST AND PM)
     Route: 065
  5. PROBIOTICS NOS [Concomitant]
     Active Substance: PROBIOTICS NOS
     Indication: Product used for unknown indication
     Dosage: PROBIOTIC, QD (AFTER BREAKFAST)
     Route: 065
     Dates: start: 20180225
  6. CENTRUM GENDER +50 [Concomitant]
     Indication: Product used for unknown indication
     Dosage: QD (AFTER BREAKFAST), MULTI-VITAMIN
  7. VITAMIN B12 [Concomitant]
     Active Substance: CYANOCOBALAMIN
     Indication: Product used for unknown indication
     Dosage: 1000 MG, QD (AFTER BREAKFAST)
     Route: 065
  8. CALCIUM\CHOLECALCIFEROL [Concomitant]
     Active Substance: CALCIUM\CHOLECALCIFEROL
     Indication: Product used for unknown indication
     Dosage: 600MG+500MG, QD (AFTER BREAKFAST)
     Route: 065
  9. VITAMIN D3 [Concomitant]
     Active Substance: CHOLECALCIFEROL
     Indication: Product used for unknown indication
     Dosage: 2000 MG, QD (AFTER BREAKFAST)
     Route: 065
  10. ASCORBIC ACID\ZINC SULFATE [Concomitant]
     Active Substance: ASCORBIC ACID\ZINC SULFATE
     Indication: Product used for unknown indication
     Dosage: 1000MG + 5.5MG, BID (AFTER BREAKFAST AND PM)
     Route: 065
  11. TROSPIUM CHLORIDE [Concomitant]
     Active Substance: TROSPIUM CHLORIDE
     Indication: Product used for unknown indication
     Dosage: 20MG QD, (AFTER BREAKFAST)
     Route: 065
     Dates: start: 20220725
  12. DIETARY SUPPLEMENT [Concomitant]
     Active Substance: DIETARY SUPPLEMENT
     Indication: Product used for unknown indication
     Dosage: QD (AFTER BREAKFAST)
     Dates: start: 20180312
  13. FISH OIL\OMEGA-3 FATTY ACIDS [Concomitant]
     Active Substance: FISH OIL\OMEGA-3 FATTY ACIDS
     Indication: Product used for unknown indication
     Dosage: 1000 MG, BID (AFTER BREAKFAST AND AFTER DINNER)
     Route: 065
     Dates: start: 20231211
  14. OTEZLA [Concomitant]
     Active Substance: APREMILAST
     Indication: Product used for unknown indication
     Dosage: 30 MG, BID (AFTER BREAKFAST AMD PM)
     Route: 065
     Dates: start: 20250304
  15. URSODIOL [Concomitant]
     Active Substance: URSODIOL
     Indication: Product used for unknown indication
     Dosage: 3 {DF}, QD (500MG AT LUNCH)
     Route: 065
  16. COENZYME Q10 [Concomitant]
     Active Substance: DIETARY SUPPLEMENT\UBIDECARENONE
     Indication: Product used for unknown indication
     Dosage: 200 MG, QD (AFTER DINNER)
     Route: 065
     Dates: start: 20210820
  17. COLACE [Concomitant]
     Active Substance: DOCUSATE SODIUM
     Indication: Faeces hard
     Dosage: 3 {DF}, QD (100 MG PM)
     Route: 065
  18. ROSUVASTATIN [Concomitant]
     Active Substance: ROSUVASTATIN
     Indication: Product used for unknown indication
     Dosage: 5 MG, QD (PM)
     Route: 065
  19. FAMOTIDINE [Concomitant]
     Active Substance: FAMOTIDINE
     Indication: Product used for unknown indication
     Dosage: 40 MG, QD (PM)
     Route: 065
  20. CALCIUM\ERGOCALCIFEROL [Concomitant]
     Active Substance: CALCIUM\ERGOCALCIFEROL
     Indication: Product used for unknown indication
     Dosage: 600MG + 200MCG, QD (PM)
     Route: 065
  21. MAGNESIUM [Concomitant]
     Active Substance: MAGNESIUM
     Indication: Product used for unknown indication
     Dosage: 250 MG, QD (PM)
     Route: 065
     Dates: start: 20180211
  22. MIRALAX [Concomitant]
     Active Substance: POLYETHYLENE GLYCOL 3350
     Indication: Product used for unknown indication
     Dosage: QD (PM)
     Route: 065
  23. MURO 128 [Concomitant]
     Active Substance: SODIUM CHLORIDE
     Indication: Product used for unknown indication
     Dosage: QD (PM)
     Route: 065
  24. ESTRADIOL [Concomitant]
     Active Substance: ESTRADIOL
     Indication: Product used for unknown indication
     Dosage: BIW (TWICE WEEKLY 0.5)
     Route: 065
  25. CLOBETASOL [Concomitant]
     Active Substance: CLOBETASOL
     Indication: Product used for unknown indication
     Route: 065
     Dates: start: 20240227
  26. CICLOPIROX [Concomitant]
     Active Substance: CICLOPIROX
     Indication: Product used for unknown indication
     Route: 065
     Dates: start: 20240427
  27. TACROLIMUS [Concomitant]
     Active Substance: TACROLIMUS
     Indication: Product used for unknown indication
     Route: 065
     Dates: start: 20240427
  28. BIOTRUE HYDRATION BOOST [Concomitant]
     Active Substance: GLYCERIN
     Indication: Eye disorder
     Route: 065
  29. BETAMETHASONE [Concomitant]
     Active Substance: BETAMETHASONE
     Indication: Nail disorder
     Dosage: BIW (0.05%- 2X WEEK) DP
     Route: 065
     Dates: start: 20250118

REACTIONS (2)
  - Psoriatic arthropathy [Unknown]
  - Injection site pain [Unknown]

NARRATIVE: CASE EVENT DATE: 20250301
